FAERS Safety Report 7187209-1 (Version None)
Quarter: 2010Q4

REPORT INFORMATION
  Report Type: 
  Country: None (occurrence: None)
  Receive Date: 20101222
  Receipt Date: 20101218
  Transmission Date: 20110411
  Serious: Yes (Hospitalization)
  Sender: FDA-Public Use
  Company Number: CA-ABBOTT-10P-028-0692664-00

PATIENT
  Sex: Male
  Weight: 64.468 kg

DRUGS (5)
  1. HUMIRA [Suspect]
     Indication: CROHN'S DISEASE
     Route: 058
     Dates: start: 20101105
  2. PREDNISONE [Concomitant]
     Indication: ANTIINFLAMMATORY THERAPY
     Route: 048
  3. PANCREATIN [Concomitant]
     Indication: ENZYME SUPPLEMENTATION
     Route: 048
  4. PANTOPRAZOLE [Concomitant]
     Indication: GASTRIC DISORDER
     Route: 048
  5. GABAPENTIN [Concomitant]
     Indication: PRODUCT USED FOR UNKNOWN INDICATION
     Dosage: 3 TAB TID
     Route: 048

REACTIONS (5)
  - CHILLS [None]
  - DRUG INEFFECTIVE [None]
  - HYPOTENSION [None]
  - PYREXIA [None]
  - TREMOR [None]
